FAERS Safety Report 8312768-2 (Version None)
Quarter: 2012Q2

REPORT INFORMATION
  Report Type: 
  Country: None (occurrence: None)
  Receive Date: 20120426
  Receipt Date: 20120423
  Transmission Date: 20120825
  Serious: No
  Sender: FDA-Public Use
  Company Number: US-PFIZER INC-2012100385

PATIENT
  Sex: Male
  Weight: 74 kg

DRUGS (1)
  1. ADVIL PM [Suspect]
     Indication: BACK PAIN
     Dosage: UNK, 2X/DAY
     Route: 048
     Dates: start: 20111101, end: 20120420

REACTIONS (2)
  - HEPATIC ENZYME INCREASED [None]
  - DIARRHOEA [None]
